FAERS Safety Report 4299179-4 (Version None)
Quarter: 2004Q1

REPORT INFORMATION
  Report Type: 
  Country: None (occurrence: None)
  Receive Date: 20040217
  Receipt Date: 20040202
  Transmission Date: 20041129
  Serious: Yes (Hospitalization)
  Sender: FDA-Public Use
  Company Number: 2004-06617

PATIENT
  Age: 49 Year
  Sex: Male
  Weight: 58.1 kg

DRUGS (6)
  1. TENOFOVIR DF [Suspect]
     Indication: HIV INFECTION
     Dosage: 300 MG QD PO
     Route: 048
     Dates: start: 20010511
  2. TIPRANAVIR [Suspect]
     Indication: HIV INFECTION
     Dosage: 1000 MG QD PO
     Route: 048
     Dates: start: 20030416
  3. RITONAVIR [Suspect]
     Indication: HIV INFECTION
     Dosage: 400 MG QD PO
     Route: 048
     Dates: start: 20030416
  4. ABACAVIR [Concomitant]
  5. DIDANOSINE [Concomitant]
  6. LAMIVUDINE [Concomitant]

REACTIONS (6)
  - ASTHENIA [None]
  - DRUG INTERACTION [None]
  - FATIGUE [None]
  - HYPOCALCAEMIA [None]
  - HYPOKALAEMIA [None]
  - RENAL TUBULAR ACIDOSIS [None]
